FAERS Safety Report 8227426-2 (Version None)
Quarter: 2012Q1

REPORT INFORMATION
  Report Type: 
  Country: None (occurrence: None)
  Receive Date: 20120322
  Receipt Date: 20120308
  Transmission Date: 20120608
  Serious: Yes (Other)
  Sender: FDA-Public Use
  Company Number: CO-AMGEN-COLSP2012002219

PATIENT
  Age: 62 Year
  Sex: Male

DRUGS (3)
  1. ENBREL [Suspect]
     Indication: RHEUMATOID ARTHRITIS
     Dosage: 50 MG, WEEKLY
     Route: 058
     Dates: start: 20050101
  2. THYROXIN [Concomitant]
     Indication: THYROID DISORDER
     Dosage: 100 MG, 1X/DAY
     Dates: start: 20070101
  3. METHOTREXATE [Suspect]
     Indication: RHEUMATOID ARTHRITIS
     Dosage: 1 CM PER WEEK

REACTIONS (2)
  - CONVULSION [None]
  - LIMB OPERATION [None]
